FAERS Safety Report 17002740 (Version 1)
Quarter: 2019Q4

REPORT INFORMATION
  Report Type: Spontaneous
  Country: US (occurrence: US)
  Receive Date: 20191107
  Receipt Date: 20191107
  Transmission Date: 20200122
  Serious: Yes (Other)
  Sender: FDA-Public Use
  Company Number: US-PFIZER INC-2019478896

PATIENT
  Age: 81 Year
  Sex: Female

DRUGS (2)
  1. XELJANZ XR [Suspect]
     Active Substance: TOFACITINIB CITRATE
  2. XELJANZ [Suspect]
     Active Substance: TOFACITINIB CITRATE
     Dosage: UNK

REACTIONS (7)
  - Joint swelling [Unknown]
  - Bone deformity [Unknown]
  - Drug ineffective [Unknown]
  - Arthritis [Unknown]
  - Pain [Unknown]
  - Rheumatoid arthritis [Unknown]
  - Joint destruction [Unknown]
